FAERS Safety Report 12341140 (Version 1)
Quarter: 2016Q2

REPORT INFORMATION
  Report Type: Report from Study
  Country: IT (occurrence: IT)
  Receive Date: 20160506
  Receipt Date: 20160506
  Transmission Date: 20160815
  Serious: Yes (Disabling)
  Sender: FDA-Public Use
  Company Number: IT-EISAI MEDICAL RESEARCH-EC-2016-016460

PATIENT
  Age: 62 Year
  Sex: Female
  Weight: 68 kg

DRUGS (8)
  1. NORVASC [Concomitant]
     Active Substance: AMLODIPINE BESYLATE
  2. LENVATINIB [Suspect]
     Active Substance: LENVATINIB
     Route: 048
     Dates: start: 20160324
  3. TRIATEC [Concomitant]
     Active Substance: RAMIPRIL
  4. NEBIVOLOLO [Concomitant]
     Active Substance: NEBIVOLOL
  5. ESIDREX [Concomitant]
     Active Substance: HYDROCHLOROTHIAZIDE
  6. LENVATINIB [Suspect]
     Active Substance: LENVATINIB
     Indication: THYROID CANCER
     Route: 048
     Dates: start: 20151209, end: 201603
  7. EUTIROX [Concomitant]
     Active Substance: LEVOTHYROXINE SODIUM
  8. OMEPRAZOLO [Concomitant]
     Active Substance: OMEPRAZOLE

REACTIONS (1)
  - Palmar-plantar erythrodysaesthesia syndrome [Not Recovered/Not Resolved]

NARRATIVE: CASE EVENT DATE: 20160317
